FAERS Safety Report 8497241 (Version 2)
Quarter: 2012Q4

REPORT INFORMATION
  Report Type: 
  Country: US (occurrence: US)
  Receive Date: 20120406
  Receipt Date: 20121008
  Transmission Date: 20130627
  Serious: Yes (Other)
  Sender: FDA-Public Use
  Company Number: US-JNJFOC-20111106372

PATIENT
  Age: 65 None
  Sex: Female

DRUGS (3)
  1. LEVAQUIN [Suspect]
     Indication: SINUSITIS
     Route: 048
     Dates: start: 2008
  2. LEVAQUIN [Suspect]
     Indication: INFECTION
     Route: 048
     Dates: start: 2008
  3. SYNTHROID [Concomitant]
     Indication: HYPOTHYROIDISM

REACTIONS (4)
  - Tendon rupture [Unknown]
  - Meniscus injury [Unknown]
  - Muscle rupture [Unknown]
  - Tendonitis [Unknown]
